FAERS Safety Report 8887928 (Version 1)
Quarter: 2012Q4

REPORT INFORMATION
  Report Type: 
  Country: US (occurrence: US)
  Receive Date: 20121106
  Receipt Date: 20121106
  Transmission Date: 20130627
  Serious: No
  Sender: FDA-Public Use
  Company Number: US-BIOGENIDEC-2012BI048213

PATIENT
  Age: 48 Year
  Sex: Female

DRUGS (3)
  1. TYSABRI [Suspect]
     Indication: MULTIPLE SCLEROSIS
     Route: 042
     Dates: start: 20100902
  2. DETROL [Concomitant]
     Indication: MULTIPLE SCLEROSIS
  3. UNKNOWN MEDICATION [Concomitant]
     Indication: MULTIPLE SCLEROSIS

REACTIONS (1)
  - Arthralgia [Not Recovered/Not Resolved]
